FAERS Safety Report 5398321-1 (Version None)
Quarter: 2007Q3

REPORT INFORMATION
  Report Type: 
  Country: None (occurrence: None)
  Receive Date: 20070724
  Receipt Date: 20070712
  Transmission Date: 20080115
  Serious: Yes (Other)
  Sender: FDA-Public Use
  Company Number: 310083K07USA

PATIENT
  Age: 44 Year
  Sex: Female

DRUGS (5)
  1. GONAL-F [Suspect]
     Indication: ASSISTED FERTILISATION
     Dates: start: 20050501
  2. GONAL-F [Suspect]
     Indication: ASSISTED FERTILISATION
     Dates: start: 20050601
  3. GONAL-F [Suspect]
     Indication: ASSISTED FERTILISATION
     Dates: start: 20050801
  4. LEVOXYL [Concomitant]
  5. HUMAN CHORIONIC GONADOTROPIN HORMONE (GONADOTROPINS) [Concomitant]

REACTIONS (6)
  - CAESAREAN SECTION [None]
  - DRUG EXPOSURE DURING PREGNANCY [None]
  - ECTOPIC PREGNANCY [None]
  - FALLOPIAN TUBE DISORDER [None]
  - FALLOPIAN TUBE PERFORATION [None]
  - HAEMORRHAGE [None]
